FAERS Safety Report 26027285 (Version 1)
Quarter: 2025Q4

REPORT INFORMATION
  Report Type: Spontaneous
  Country: PR (occurrence: PR)
  Receive Date: 20251111
  Receipt Date: 20251111
  Transmission Date: 20260119
  Serious: No
  Sender: ABBVIE
  Company Number: PR-ABBVIE-6542545

PATIENT
  Sex: Female

DRUGS (1)
  1. SKYRIZI [Suspect]
     Active Substance: RISANKIZUMAB-RZAA
     Indication: Crohn^s disease
     Dosage: INJECTION
     Route: 058
     Dates: start: 202505

REACTIONS (1)
  - Peripheral swelling [Recovered/Resolved]

NARRATIVE: CASE EVENT DATE: 20250101
